FAERS Safety Report 15301067 (Version 1)
Quarter: 2018Q3

REPORT INFORMATION
  Report Type: Spontaneous
  Country: SE (occurrence: SE)
  Receive Date: 20180821
  Receipt Date: 20180821
  Transmission Date: 20181010
  Serious: Yes (Hospitalization)
  Sender: FDA-Public Use
  Company Number: SE-JNJFOC-20180815027

PATIENT
  Age: 47 Year
  Sex: Female

DRUGS (10)
  1. ALVEDON [Concomitant]
     Active Substance: ACETAMINOPHEN
     Route: 065
  2. LEVAXIN [Concomitant]
     Active Substance: LEVOTHYROXINE SODIUM
     Route: 065
  3. DIMOR [Concomitant]
     Active Substance: LOPERAMIDE
     Route: 065
  4. PREDNISOLONE. [Concomitant]
     Active Substance: PREDNISOLONE
     Route: 065
  5. PURINETHOL [Concomitant]
     Active Substance: MERCAPTOPURINE
     Route: 065
  6. BEHEPAN [Concomitant]
     Active Substance: HYDROXOCOBALAMIN
     Route: 065
  7. OXYNORM [Concomitant]
     Active Substance: OXYCODONE HYDROCHLORIDE
     Route: 065
  8. KAJOS [Concomitant]
     Active Substance: POTASSIUM CITRATE
     Route: 048
  9. STELARA [Suspect]
     Active Substance: USTEKINUMAB
     Indication: CROHN^S DISEASE
     Route: 058
     Dates: start: 20171211, end: 20180529
  10. OMEPRAZOLE. [Concomitant]
     Active Substance: OMEPRAZOLE
     Route: 065

REACTIONS (1)
  - Hepatotoxicity [Recovered/Resolved]

NARRATIVE: CASE EVENT DATE: 20180607
